FAERS Safety Report 16827017 (Version 1)
Quarter: 2019Q3

REPORT INFORMATION
  Report Type: Spontaneous
  Country: US (occurrence: US)
  Receive Date: 20190728
  Receipt Date: 20190728
  Transmission Date: 20191005
  Serious: Yes (Hospitalization)
  Sender: FDA-Public Use
  Company Number: None

PATIENT
  Age: 44 Year
  Sex: Male
  Weight: 105 kg

DRUGS (4)
  1. IFOSFAMIDE. [Suspect]
     Active Substance: IFOSFAMIDE
     Dates: end: 20190714
  2. TAXOL [Suspect]
     Active Substance: PACLITAXEL
     Dates: end: 20190710
  3. G-CSF (FILGRASTIM, AMGEN) [Suspect]
     Active Substance: FILGRASTIM
     Dates: end: 20190718
  4. CISPLATIN. [Suspect]
     Active Substance: CISPLATIN
     Dates: end: 20190714

REACTIONS (10)
  - Osteomyelitis [None]
  - Neutropenia [None]
  - Tachycardia [None]
  - Intervertebral disc disorder [None]
  - Infection [None]
  - Catheter culture positive [None]
  - Pyrexia [None]
  - Culture urine positive [None]
  - Malaise [None]
  - Escherichia infection [None]

NARRATIVE: CASE EVENT DATE: 20190719
